FAERS Safety Report 14732999 (Version 5)
Quarter: 2020Q4

REPORT INFORMATION
  Report Type: Other
  Country: RO (occurrence: RO)
  Receive Date: 20180409
  Receipt Date: 20201114
  Transmission Date: 20210113
  Serious: Yes (Death, Hospitalization)
  Sender: FDA-Public Use
  Company Number: RO-ROCHE-2099020

PATIENT
  Age: 18 Year
  Sex: Female

DRUGS (26)
  1. CELLCEPT [Suspect]
     Active Substance: MYCOPHENOLATE MOFETIL\MYCOPHENOLATE MOFETIL HYDROCHLORIDE
     Route: 048
     Dates: start: 200808, end: 200812
  2. PROGRAF [Suspect]
     Active Substance: TACROLIMUS
     Dosage: 1 MG IN MORNING  AND 0.5 MG IN NIGHT
     Route: 048
     Dates: start: 201502, end: 20150330
  3. MYFORTIC [Suspect]
     Active Substance: MYCOPHENOLATE SODIUM
     Indication: RENAL TRANSPLANT
     Dosage: 540 MG IN MORNING AND 360 MG IN NIGHT
     Route: 048
     Dates: start: 201103, end: 201203
  4. SIROLIMUS. [Suspect]
     Active Substance: SIROLIMUS
     Indication: RENAL TRANSPLANT
     Route: 048
     Dates: start: 20150330, end: 20150515
  5. PROGRAF [Suspect]
     Active Substance: TACROLIMUS
     Indication: RENAL TRANSPLANT
     Route: 048
     Dates: start: 200902, end: 200903
  6. PROGRAF [Suspect]
     Active Substance: TACROLIMUS
     Route: 048
     Dates: start: 200903, end: 201009
  7. SIROLIMUS. [Suspect]
     Active Substance: SIROLIMUS
     Indication: PROPHYLAXIS AGAINST TRANSPLANT REJECTION
  8. VALGANCICLOVIR. [Concomitant]
     Active Substance: VALGANCICLOVIR
     Indication: ANTIVIRAL TREATMENT
  9. CELLCEPT [Suspect]
     Active Substance: MYCOPHENOLATE MOFETIL\MYCOPHENOLATE MOFETIL HYDROCHLORIDE
     Indication: RENAL TRANSPLANT
     Dosage: (750 MG IN MORNING, 500 MG IN NIGHT),TWICE DAILY
     Route: 048
     Dates: start: 201009, end: 201105
  10. CELLCEPT [Suspect]
     Active Substance: MYCOPHENOLATE MOFETIL\MYCOPHENOLATE MOFETIL HYDROCHLORIDE
     Indication: PROPHYLAXIS AGAINST TRANSPLANT REJECTION
     Route: 048
     Dates: start: 200902, end: 201009
  11. CELLCEPT [Suspect]
     Active Substance: MYCOPHENOLATE MOFETIL\MYCOPHENOLATE MOFETIL HYDROCHLORIDE
     Dosage: (750 MG IN MORNING, 500MG IN NIGHT)
     Route: 048
  12. PROGRAF [Suspect]
     Active Substance: TACROLIMUS
     Dosage: 2 MG IN MORNING AND 1.5 MG IN NIGHT
     Route: 048
     Dates: start: 201009, end: 201301
  13. PROGRAF [Suspect]
     Active Substance: TACROLIMUS
     Route: 048
     Dates: start: 200808, end: 200812
  14. MEDROL [Suspect]
     Active Substance: METHYLPREDNISOLONE
     Route: 048
     Dates: start: 200903, end: 201301
  15. GANCICLOVIR. [Concomitant]
     Active Substance: GANCICLOVIR
     Indication: ANTIVIRAL TREATMENT
  16. MEDROL [Suspect]
     Active Substance: METHYLPREDNISOLONE
     Indication: RENAL TRANSPLANT
     Route: 048
     Dates: start: 200812, end: 200903
  17. MEDROL [Suspect]
     Active Substance: METHYLPREDNISOLONE
     Indication: PROPHYLAXIS AGAINST TRANSPLANT REJECTION
     Route: 048
     Dates: start: 200802, end: 200812
  18. CELLCEPT [Suspect]
     Active Substance: MYCOPHENOLATE MOFETIL\MYCOPHENOLATE MOFETIL HYDROCHLORIDE
     Route: 048
     Dates: start: 200812, end: 200902
  19. PROGRAF [Suspect]
     Active Substance: TACROLIMUS
     Route: 048
  20. MYFORTIC [Suspect]
     Active Substance: MYCOPHENOLATE SODIUM
     Route: 048
     Dates: start: 20150209, end: 20150226
  21. PROGRAF [Suspect]
     Active Substance: TACROLIMUS
     Indication: PROPHYLAXIS AGAINST TRANSPLANT REJECTION
     Route: 048
     Dates: start: 201301, end: 201502
  22. PROGRAF [Suspect]
     Active Substance: TACROLIMUS
     Indication: IMMUNOSUPPRESSION
     Route: 048
     Dates: start: 200812, end: 200902
  23. THYMOGLOBULIN [Suspect]
     Active Substance: LAPINE T-LYMPHOCYTE IMMUNE GLOBULIN
     Indication: RENAL TRANSPLANT
     Route: 042
     Dates: start: 200812
  24. THYMOGLOBULIN [Suspect]
     Active Substance: LAPINE T-LYMPHOCYTE IMMUNE GLOBULIN
     Indication: PROPHYLAXIS AGAINST TRANSPLANT REJECTION
  25. MYFORTIC [Suspect]
     Active Substance: MYCOPHENOLATE SODIUM
     Route: 048
     Dates: start: 201203, end: 20150203
  26. MYFORTIC [Suspect]
     Active Substance: MYCOPHENOLATE SODIUM
     Route: 048
     Dates: start: 20150203, end: 20150209

REACTIONS (22)
  - Lymphopenia [Fatal]
  - Thymus enlargement [Fatal]
  - Leukopenia [Fatal]
  - Salivary gland mass [Fatal]
  - Anaemia [Fatal]
  - Abdominal pain lower [Fatal]
  - Pericarditis [Fatal]
  - Dysphagia [Fatal]
  - Lymphadenopathy [Fatal]
  - Ascites [Fatal]
  - Dizziness [Fatal]
  - Epstein-Barr virus infection [Fatal]
  - Post transplant lymphoproliferative disorder [Fatal]
  - Asthenia [Fatal]
  - Hodgkin^s disease lymphocyte depletion type stage unspecified [Fatal]
  - Jaundice [Fatal]
  - Decreased appetite [Fatal]
  - Urinary tract infection [Recovered/Resolved]
  - Pleurisy [Fatal]
  - Hodgkin^s disease [Fatal]
  - Stomatitis [Fatal]
  - Pyrexia [Fatal]

NARRATIVE: CASE EVENT DATE: 200810
